FAERS Safety Report 5316336-6 (Version None)
Quarter: 2007Q2

REPORT INFORMATION
  Report Type: 
  Country: None (occurrence: None)
  Receive Date: 20070430
  Receipt Date: 20070416
  Transmission Date: 20071010
  Serious: Yes (Hospitalization)
  Sender: FDA-Public Use
  Company Number: 155323USA

PATIENT
  Age: 75 Year
  Sex: Male

DRUGS (9)
  1. AZILECT [Suspect]
     Dosage: FOR APPROXIMATELY 40 DAYS (1 MG)
     Dates: start: 20070301, end: 20070414
  2. ACETYLSALICYLIC ACID SRT [Concomitant]
  3. ESOMEPRAZOLE MAGNESIUM [Concomitant]
  4. LISINOPRIL [Concomitant]
  5. ATENOLOL [Concomitant]
  6. FINASTERIDE [Concomitant]
  7. MORNIFLUMATE [Concomitant]
  8. ALFUZOSIN HYDROCHLORIDE [Concomitant]
  9. VITAMIN CAP [Concomitant]

REACTIONS (3)
  - BLOOD URINE PRESENT [None]
  - URINARY TRACT DISORDER [None]
  - URINARY TRACT INFECTION [None]
